FAERS Safety Report 11628950 (Version 1)
Quarter: 2015Q4

REPORT INFORMATION
  Report Type: Spontaneous
  Country: US (occurrence: None)
  Receive Date: 20151013
  Receipt Date: 20151013
  Transmission Date: 20160304
  Serious: Yes (Life-Threatening, Hospitalization)
  Sender: FDA-Public Use
  Company Number: None

PATIENT
  Sex: Female
  Weight: 48.54 kg

DRUGS (7)
  1. FOSAMAX [Suspect]
     Active Substance: ALENDRONATE SODIUM
     Indication: OSTEOPOROSIS
  2. LYRICA [Concomitant]
     Active Substance: PREGABALIN
  3. LIDOCAINE OINTMENT [Concomitant]
     Active Substance: LIDOCAINE
  4. VITAMIN D3 [Concomitant]
     Active Substance: CHOLECALCIFEROL
  5. LOVAZA [Concomitant]
     Active Substance: OMEGA-3-ACID ETHYL ESTERS
  6. CALCIUM [Concomitant]
     Active Substance: CALCIUM
  7. TRAMADOL. [Concomitant]
     Active Substance: TRAMADOL

REACTIONS (9)
  - Eating disorder [None]
  - Weight decreased [None]
  - Anaemia [None]
  - Acute kidney injury [None]
  - Nausea [None]
  - Feeling cold [None]
  - Malaise [None]
  - Asthenia [None]
  - Abdominal distension [None]
